FAERS Safety Report 9973745 (Version 1)
Quarter: 2014Q1

REPORT INFORMATION
  Report Type: Spontaneous
  Country: CA (occurrence: US)
  Receive Date: 20140306
  Receipt Date: 20140306
  Transmission Date: 20141002
  Serious: No
  Sender: FDA-Public Use
  Company Number: CA-GILEAD-2012-0058363

PATIENT
  Sex: Male

DRUGS (1)
  1. VIREAD [Suspect]
     Indication: CHRONIC HEPATITIS B

REACTIONS (1)
  - Dyspnoea [Recovered/Resolved]
